FAERS Safety Report 9087865 (Version 2)
Quarter: 2013Q1

REPORT INFORMATION
  Report Type: Report from Study
  Country: US (occurrence: US)
  Receive Date: 20130131
  Receipt Date: 20130219
  Transmission Date: 20140127
  Serious: Yes (Other)
  Sender: FDA-Public Use
  Company Number: US-TEVA-383591USA

PATIENT
  Age: 17 Year
  Sex: Male

DRUGS (1)
  1. CLARAVIS [Suspect]
     Dosage: 80 MILLIGRAM DAILY;
     Route: 048

REACTIONS (2)
  - Suicidal ideation [Unknown]
  - Mood swings [Unknown]
